FAERS Safety Report 23742855 (Version 1)
Quarter: 2024Q2

REPORT INFORMATION
  Report Type: Spontaneous
  Country: US (occurrence: US)
  Receive Date: 20240415
  Receipt Date: 20240415
  Transmission Date: 20240716
  Serious: No
  Sender: FDA-Public Use
  Company Number: US-FreseniusKabi-FK202405853

PATIENT
  Age: 67 Year
  Sex: Male
  Weight: 110.7 kg

DRUGS (1)
  1. EPINEPHRINE\LIDOCAINE [Suspect]
     Active Substance: EPINEPHRINE\LIDOCAINE
     Indication: Haemorrhage prophylaxis
     Dosage: FORM OF ADMIN: INJECTED INSIDE NOSE
     Dates: start: 20240402, end: 20240402

REACTIONS (2)
  - Heart rate increased [Recovered/Resolved]
  - Off label use [Recovered/Resolved]

NARRATIVE: CASE EVENT DATE: 20240402
